FAERS Safety Report 19730030 (Version 9)
Quarter: 2024Q4

REPORT INFORMATION
  Report Type: Other
  Country: CA (occurrence: CA)
  Receive Date: 20210820
  Receipt Date: 20241107
  Transmission Date: 20250114
  Serious: Yes (Other)
  Sender: TOLMAR
  Company Number: CA-TOLMAR, INC.-21CA029714

PATIENT
  Sex: Male

DRUGS (14)
  1. ELIGARD [Suspect]
     Active Substance: LEUPROLIDE ACETATE
     Indication: Prostate cancer
     Dosage: 45 MILLIGRAM, Q 6 MONTH
     Route: 058
     Dates: start: 20161222
  2. ELIGARD [Suspect]
     Active Substance: LEUPROLIDE ACETATE
     Dosage: 45 MILLIGRAM, Q 6 MONTH
     Route: 058
     Dates: start: 20210805
  3. ELIGARD [Suspect]
     Active Substance: LEUPROLIDE ACETATE
     Dosage: 45 MILLIGRAM, Q 6 MONTH
     Route: 058
     Dates: start: 20220707
  4. ELIGARD [Suspect]
     Active Substance: LEUPROLIDE ACETATE
     Dosage: 45 MILLIGRAM, Q 6 MONTH
     Route: 058
     Dates: start: 20230608
  5. ELIGARD [Suspect]
     Active Substance: LEUPROLIDE ACETATE
     Dosage: 45 MILLIGRAM, Q 6 MONTH
     Route: 058
     Dates: start: 20231123
  6. ELIGARD [Suspect]
     Active Substance: LEUPROLIDE ACETATE
     Dosage: 45 MILLIGRAM, Q 6 MONTH
     Route: 058
     Dates: start: 20240509
  7. ELIGARD [Suspect]
     Active Substance: LEUPROLIDE ACETATE
     Dosage: 45 MILLIGRAM, Q 6 MONTH
     Route: 058
     Dates: start: 20241030
  8. CASODEX [Suspect]
     Active Substance: BICALUTAMIDE
     Indication: Prostatic specific antigen increased
     Dosage: UNK
     Dates: start: 2018
  9. CASODEX [Suspect]
     Active Substance: BICALUTAMIDE
     Dosage: UNK
     Dates: start: 2019
  10. XTANDI [Suspect]
     Active Substance: ENZALUTAMIDE
     Indication: Product used for unknown indication
     Dosage: 4 A DAY
  11. XTANDI [Suspect]
     Active Substance: ENZALUTAMIDE
     Dosage: 2 PER DAY
     Dates: start: 201905
  12. UNSPECIFIED INGREDIENT [Suspect]
     Active Substance: UNSPECIFIED INGREDIENT
     Indication: Metastases to bone
     Dosage: UNK
     Dates: start: 20231101
  13. UNSPECIFIED INGREDIENT [Suspect]
     Active Substance: UNSPECIFIED INGREDIENT
     Indication: Lymphadenopathy
     Dosage: UNK
     Dates: start: 2017
  14. UNSPECIFIED INGREDIENT [Suspect]
     Active Substance: UNSPECIFIED INGREDIENT
     Indication: Splenomegaly
     Dosage: UNK
     Dates: start: 202404

REACTIONS (27)
  - Hypertensive crisis [Unknown]
  - Haematological neoplasm [Unknown]
  - Cachexia [Unknown]
  - Lymphoma [Unknown]
  - Metastases to bone [Not Recovered/Not Resolved]
  - Abdominal pain [Not Recovered/Not Resolved]
  - Weight decreased [Unknown]
  - Decreased appetite [Recovered/Resolved]
  - Abdominal pain upper [Recovered/Resolved]
  - Peripheral swelling [Not Recovered/Not Resolved]
  - Hypoaesthesia [Not Recovered/Not Resolved]
  - Musculoskeletal stiffness [Not Recovered/Not Resolved]
  - Sleep disorder due to a general medical condition [Not Recovered/Not Resolved]
  - Splenomegaly [Recovering/Resolving]
  - Anaemia [Unknown]
  - Dyspnoea [Unknown]
  - Diarrhoea [Unknown]
  - Rash [Recovered/Resolved]
  - Injection site mass [Not Recovered/Not Resolved]
  - Injection site pain [Recovered/Resolved]
  - Asthenia [Unknown]
  - Dizziness [Unknown]
  - Hot flush [Unknown]
  - Fatigue [Unknown]
  - Malaise [Unknown]
  - Nausea [Unknown]
  - Prostatic specific antigen increased [Recovering/Resolving]

NARRATIVE: CASE EVENT DATE: 20200101
